FAERS Safety Report 9776726 (Version 1)
Quarter: 2013Q4

REPORT INFORMATION
  Report Type: Spontaneous
  Country: KR (occurrence: KR)
  Receive Date: 20131220
  Receipt Date: 20131220
  Transmission Date: 20140711
  Serious: Yes (Hospitalization, Other)
  Sender: FDA-Public Use
  Company Number: KR-ABBVIE-13P-090-1180776-00

PATIENT
  Sex: Male

DRUGS (1)
  1. HUMIRA [Suspect]
     Indication: JUVENILE IDIOPATHIC ARTHRITIS
     Dates: start: 201309

REACTIONS (6)
  - Joint swelling [Not Recovered/Not Resolved]
  - Laboratory test abnormal [Unknown]
  - Generalised oedema [Unknown]
  - Nasopharyngitis [Not Recovered/Not Resolved]
  - Juvenile idiopathic arthritis [Unknown]
  - Juvenile idiopathic arthritis [Unknown]
